FAERS Safety Report 9286292 (Version 1)
Quarter: 2013Q2

REPORT INFORMATION
  Report Type: Spontaneous
  Country: US (occurrence: US)
  Receive Date: 20130513
  Receipt Date: 20130513
  Transmission Date: 20140414
  Serious: No
  Sender: FDA-Public Use
  Company Number: US-ASTRAZENECA-2013SE31343

PATIENT
  Age: 60 Year
  Sex: Male
  Weight: 104.3 kg

DRUGS (4)
  1. NEXIUM [Suspect]
     Indication: GASTROOESOPHAGEAL REFLUX DISEASE
     Route: 048
  2. FISH OIL [Concomitant]
  3. METFORMIN [Concomitant]
  4. HIGH BLOOD PRESSURE MEDICATION [Concomitant]

REACTIONS (4)
  - Diabetes mellitus [Unknown]
  - Hypertension [Unknown]
  - Malaise [Unknown]
  - Drug dose omission [Unknown]
